FAERS Safety Report 25242688 (Version 1)
Quarter: 2025Q2

REPORT INFORMATION
  Report Type: Spontaneous
  Country: US (occurrence: US)
  Receive Date: 20250427
  Receipt Date: 20250427
  Transmission Date: 20250717
  Serious: Yes (Hospitalization)
  Sender: JOHNSON AND JOHNSON
  Company Number: US-JNJFOC-20250429008

PATIENT
  Age: 70 Year
  Sex: Female
  Weight: 60.3 kg

DRUGS (17)
  1. OPSUMIT [Suspect]
     Active Substance: MACITENTAN
     Indication: Product used for unknown indication
     Route: 048
  2. TYVASO DPI [Suspect]
     Active Substance: TREPROSTINIL
     Indication: Pulmonary arterial hypertension
  3. TYVASO DPI [Suspect]
     Active Substance: TREPROSTINIL
     Dates: start: 20250227
  4. TYVASO DPI [Suspect]
     Active Substance: TREPROSTINIL
  5. FAMOTIDINE [Concomitant]
     Active Substance: FAMOTIDINE
  6. MECLOZINE DIHYDROCHLORIDE [Concomitant]
     Active Substance: MECLOZINE DIHYDROCHLORIDE
  7. DICLOFENAC SODIUM [Concomitant]
     Active Substance: DICLOFENAC SODIUM
  8. LORATADINE [Concomitant]
     Active Substance: LORATADINE
  9. ACETAMINOPHEN [Concomitant]
     Active Substance: ACETAMINOPHEN
  10. SPIRONOLACTONE [Concomitant]
     Active Substance: SPIRONOLACTONE
  11. XARELTO [Concomitant]
     Active Substance: RIVAROXABAN
  12. HYDROCHLOROTHIAZIDE [Concomitant]
     Active Substance: HYDROCHLOROTHIAZIDE
  13. METOPROLOL SUCCINATE [Concomitant]
     Active Substance: METOPROLOL SUCCINATE
  14. SILDENAFIL CITRATE [Concomitant]
     Active Substance: SILDENAFIL CITRATE
  15. ATORVASTATIN CALCIUM [Concomitant]
     Active Substance: ATORVASTATIN CALCIUM
  16. FLONASE ALLERGY RELIEF [Concomitant]
     Active Substance: FLUTICASONE PROPIONATE
  17. POTASSIUM CHLORIDE [Concomitant]
     Active Substance: POTASSIUM CHLORIDE

REACTIONS (6)
  - Headache [Unknown]
  - Dizziness [Unknown]
  - Abdominal pain [Unknown]
  - Vomiting [Unknown]
  - Cough [Unknown]
  - Chills [Unknown]

NARRATIVE: CASE EVENT DATE: 20250405
